FAERS Safety Report 13856955 (Version 1)
Quarter: 2017Q3

REPORT INFORMATION
  Report Type: Spontaneous
  Country: US (occurrence: US)
  Receive Date: 20170810
  Receipt Date: 20170810
  Transmission Date: 20171127
  Serious: No
  Sender: FDA-Public Use
  Company Number: US-ROCHE-759615

PATIENT
  Age: 9 Year
  Sex: Male
  Weight: 49.9 kg

DRUGS (1)
  1. TAMIFLU [Suspect]
     Active Substance: OSELTAMIVIR PHOSPHATE
     Indication: INFLUENZA
     Dosage: STRENGTH: 12MG/ML
     Route: 048
     Dates: start: 20110202, end: 20110204

REACTIONS (2)
  - Retching [Unknown]
  - Vomiting [Unknown]

NARRATIVE: CASE EVENT DATE: 20110202
